FAERS Safety Report 16089097 (Version 1)
Quarter: 2019Q1

REPORT INFORMATION
  Report Type: Spontaneous
  Country: US (occurrence: US)
  Receive Date: 20190215
  Receipt Date: 20190215
  Transmission Date: 20190418
  Serious: Yes (Hospitalization)
  Sender: FDA-Public Use
  Company Number: None

PATIENT
  Age: 58 Year
  Sex: Female

DRUGS (11)
  1. AVAPRO [Concomitant]
     Active Substance: IRBESARTAN
  2. GABAPENTIN. [Concomitant]
     Active Substance: GABAPENTIN
  3. ASPIRIN. [Concomitant]
     Active Substance: ASPIRIN
  4. POTASSIUM [Concomitant]
     Active Substance: POTASSIUM
  5. BACLOFEN. [Concomitant]
     Active Substance: BACLOFEN
  6. REBIF [Suspect]
     Active Substance: INTERFERON BETA-1A
     Indication: PSORIASIS
     Route: 058
     Dates: start: 20180124
  7. VITAMIN D [Concomitant]
     Active Substance: CHOLECALCIFEROL
  8. LIPITOR [Concomitant]
     Active Substance: ATORVASTATIN CALCIUM
  9. TYLENOL [Concomitant]
     Active Substance: ACETAMINOPHEN
  10. MELOXICAM. [Concomitant]
     Active Substance: MELOXICAM
  11. LEXAPRO [Concomitant]
     Active Substance: ESCITALOPRAM OXALATE

REACTIONS (5)
  - Fatigue [None]
  - Fall [None]
  - Asthenia [None]
  - Cerebrovascular accident [None]
  - Depression [None]
